FAERS Safety Report 15323943 (Version 2)
Quarter: 2018Q3

REPORT INFORMATION
  Report Type: Report from Study
  Country: CO (occurrence: CO)
  Receive Date: 20180828
  Receipt Date: 20180830
  Transmission Date: 20181010
  Serious: Yes (Death, Life-Threatening, Hospitalization, Other)
  Sender: FDA-Public Use
  Company Number: CO-AMGEN-COLSL2018025399

PATIENT
  Age: 74 Year
  Sex: Female

DRUGS (1)
  1. ARANESP [Suspect]
     Active Substance: DARBEPOETIN ALFA
     Indication: NEPHROGENIC ANAEMIA
     Dosage: 80 MUG, Q2WK
     Route: 058
     Dates: start: 20180110, end: 20180801

REACTIONS (7)
  - Treatment failure [Not Recovered/Not Resolved]
  - Choking [Not Recovered/Not Resolved]
  - Death [Fatal]
  - Asphyxia [Not Recovered/Not Resolved]
  - Coma [Not Recovered/Not Resolved]
  - Haemorrhagic stroke [Not Recovered/Not Resolved]
  - Haemoglobin decreased [Not Recovered/Not Resolved]

NARRATIVE: CASE EVENT DATE: 20180402
